FAERS Safety Report 24438796 (Version 1)
Quarter: 2024Q4

REPORT INFORMATION
  Report Type: Spontaneous
  Country: US (occurrence: None)
  Receive Date: 20241014
  Receipt Date: 20241014
  Transmission Date: 20250115
  Serious: Yes (Other)
  Sender: Public
  Company Number: None

PATIENT
  Age: 63 Year
  Sex: Male
  Weight: 101 kg

DRUGS (1)
  1. PRIALT [Suspect]
     Active Substance: ZICONOTIDE ACETATE
     Indication: Pain
     Dosage: FREQUENCY : DAILY;?
     Route: 037

REACTIONS (3)
  - Chest discomfort [None]
  - Hallucination [None]
  - Agitation [None]

NARRATIVE: CASE EVENT DATE: 20241012
